FAERS Safety Report 26173669 (Version 1)
Quarter: 2025Q4

REPORT INFORMATION
  Report Type: Spontaneous
  Country: US (occurrence: US)
  Receive Date: 20251218
  Receipt Date: 20251218
  Transmission Date: 20260118
  Serious: Yes (Other)
  Sender: BAXTER
  Company Number: US-MLMSERVICE-20251204-PI740039-00128-1

PATIENT
  Age: 70 Year
  Sex: Male

DRUGS (2)
  1. DOXORUBICIN [Suspect]
     Active Substance: DOXORUBICIN
     Indication: Malignant fibrous histiocytoma
     Dosage: CHEMOTHERAPY REGIMEN
     Route: 065
  2. CISPLATIN [Concomitant]
     Active Substance: CISPLATIN
     Indication: Malignant fibrous histiocytoma
     Dosage: CHEMOTHERAPY REGIMEN
     Route: 065

REACTIONS (1)
  - Cerebrovascular accident [Unknown]
